FAERS Safety Report 9115550 (Version 1)
Quarter: 2013Q1

REPORT INFORMATION
  Report Type: Spontaneous
  Country: US (occurrence: US)
  Receive Date: 20130225
  Receipt Date: 20130225
  Transmission Date: 20140127
  Serious: No
  Sender: FDA-Public Use
  Company Number: US-B.I. PHARMACEUTICALS,INC./RIDGEFIELD-2013-BI-00193BP

PATIENT
  Sex: 0

DRUGS (2)
  1. PRADAXA [Suspect]
     Route: 048
  2. MULTAQ [Concomitant]
     Route: 048

REACTIONS (2)
  - Haemorrhage [Unknown]
  - Renal failure [Unknown]
